FAERS Safety Report 19294635 (Version 1)
Quarter: 2021Q2

REPORT INFORMATION
  Report Type: Spontaneous
  Country: PT (occurrence: PT)
  Receive Date: 20210524
  Receipt Date: 20210524
  Transmission Date: 20210717
  Serious: Yes (Life-Threatening, Other)
  Sender: FDA-Public Use
  Company Number: PT-PFIZER INC-2021450616

PATIENT
  Age: 66 Year
  Sex: Female

DRUGS (2)
  1. GLASDEGIB [Suspect]
     Active Substance: GLASDEGIB
     Indication: MYELODYSPLASTIC SYNDROME
     Dosage: 100 MG, CYCLIC (28 DAYS DAILY, 2 CYCLES)
     Route: 048
     Dates: start: 2019
  2. CYTARABINE. [Suspect]
     Active Substance: CYTARABINE
     Indication: MYELODYSPLASTIC SYNDROME
     Dosage: 20 MG/M2, CYCLIC (LOW?DOSE? 2 CYCLES) 10 DAYS PER CYCLE
     Route: 058
     Dates: start: 2019

REACTIONS (1)
  - Febrile neutropenia [Unknown]
